FAERS Safety Report 7327635-0 (Version None)
Quarter: 2011Q1

REPORT INFORMATION
  Report Type: 
  Country: None (occurrence: None)
  Receive Date: 20110303
  Receipt Date: 20110218
  Transmission Date: 20110831
  Serious: Yes (Death, Other)
  Sender: FDA-Public Use
  Company Number: NZ-CELGENEUS-118-21880-10092097

PATIENT
  Sex: Male
  Weight: 94.8 kg

DRUGS (4)
  1. DEXAMETHASONE [Concomitant]
     Indication: MULTIPLE MYELOMA
     Dosage: 40 MILLIGRAM
     Dates: start: 20100501
  2. SEVREDOL [Concomitant]
     Route: 065
  3. MORPHINE SULFATE [Concomitant]
     Indication: BACK PAIN
     Dosage: 60 MILLIGRAM
     Route: 065
  4. REVLIMID [Suspect]
     Indication: MULTIPLE MYELOMA
     Dosage: 15 MILLIGRAM
     Route: 048
     Dates: start: 20100602, end: 20100610

REACTIONS (4)
  - STAPHYLOCOCCAL SEPSIS [None]
  - RENAL FAILURE ACUTE [None]
  - PNEUMONIA STAPHYLOCOCCAL [None]
  - TUMOUR LYSIS SYNDROME [None]
